FAERS Safety Report 16536933 (Version 1)
Quarter: 2019Q3

REPORT INFORMATION
  Report Type: Spontaneous
  Country: US (occurrence: US)
  Receive Date: 20190523
  Receipt Date: 20190523
  Transmission Date: 20191004
  Serious: No
  Sender: FDA-Public Use
  Company Number: None

PATIENT
  Sex: Female

DRUGS (1)
  1. IMATINIB MESYLATE 100MG TEVA PHARMACEUTICVALS USA [Suspect]
     Active Substance: IMATINIB MESYLATE
     Indication: PULMONARY HYPERTENSION
     Route: 048
     Dates: start: 20190425

REACTIONS (2)
  - Oral mucosal blistering [None]
  - Night sweats [None]
